FAERS Safety Report 12706463 (Version 1)
Quarter: 2016Q3

REPORT INFORMATION
  Report Type: Spontaneous
  Country: US (occurrence: US)
  Receive Date: 20160901
  Receipt Date: 20160901
  Transmission Date: 20161109
  Serious: No
  Sender: FDA-Public Use
  Company Number: US-PFIZER INC-2016393974

PATIENT
  Sex: Female
  Weight: 56 kg

DRUGS (6)
  1. CELEBREX [Concomitant]
     Active Substance: CELECOXIB
     Dosage: 200 MG, 2X/DAY
     Route: 048
     Dates: start: 201605, end: 201606
  2. CELEBREX [Concomitant]
     Active Substance: CELECOXIB
     Dosage: 200 MG, ALTERNATE DAY
     Route: 048
     Dates: start: 201606, end: 201608
  3. LEVOTHYROXINE SODIUM. [Suspect]
     Active Substance: LEVOTHYROXINE SODIUM
     Indication: THYROID DISORDER
     Dosage: 88 UG
  4. CELEBREX [Concomitant]
     Active Substance: CELECOXIB
     Indication: NECK SURGERY
     Dosage: 200 MG, 1X/DAY
     Route: 048
  5. LOVASTATIN. [Concomitant]
     Active Substance: LOVASTATIN
     Indication: BLOOD CHOLESTEROL
     Dosage: 20 MG
     Dates: start: 2015
  6. PREMARIN [Concomitant]
     Active Substance: ESTROGENS, CONJUGATED
     Dosage: 10 MG
     Dates: end: 2016

REACTIONS (2)
  - Bruxism [Unknown]
  - Hypersomnia [Unknown]
